FAERS Safety Report 8937376 (Version 1)
Quarter: 2012Q4

REPORT INFORMATION
  Report Type: Spontaneous
  Country: US (occurrence: None)
  Receive Date: 20121128
  Receipt Date: 20121128
  Transmission Date: 20130627
  Serious: Yes (Other)
  Sender: FDA-Public Use
  Company Number: None

PATIENT
  Age: 22 Year
  Sex: Female
  Weight: 58.97 kg

DRUGS (1)
  1. PENNSAID 1.5% MALLINCKRODT [Suspect]
     Indication: MUSCLE STRAIN
     Dosage: 20 drops; tic, top
     Route: 061
     Dates: start: 20121031, end: 20121031

REACTIONS (3)
  - Application site pain [None]
  - Application site erythema [None]
  - Application site vesicles [None]
